FAERS Safety Report 7719170-2 (Version None)
Quarter: 2011Q3

REPORT INFORMATION
  Report Type: 
  Country: None (occurrence: None)
  Receive Date: 20110830
  Receipt Date: 20110824
  Transmission Date: 20111222
  Serious: Yes (Hospitalization, Other)
  Sender: FDA-Public Use
  Company Number: US-ABBOTT-11P-163-0849634-00

PATIENT
  Age: 51 Year
  Sex: Female

DRUGS (9)
  1. NORCO [Concomitant]
     Indication: PAIN
  2. HUMIRA [Suspect]
     Indication: PSORIATIC ARTHROPATHY
     Dates: start: 20080601
  3. MAXZIDE [Concomitant]
     Indication: PRODUCT USED FOR UNKNOWN INDICATION
     Dosage: 37.5MG/25MG ONCE DAILY
  4. MEVACOR [Concomitant]
     Indication: PRODUCT USED FOR UNKNOWN INDICATION
  5. CLOBETASOL PROPIONATE [Concomitant]
     Indication: ONYCHOMYCOSIS
     Dosage: FOAM
  6. SYNTHROID [Concomitant]
     Indication: PRODUCT USED FOR UNKNOWN INDICATION
  7. OMEPRAZOLE [Concomitant]
     Indication: PRODUCT USED FOR UNKNOWN INDICATION
  8. CYMBALTA [Concomitant]
     Indication: PRODUCT USED FOR UNKNOWN INDICATION
  9. SUSTAINED EYE DROPS [Concomitant]
     Indication: DRY EYE

REACTIONS (9)
  - BLADDER NECK SUSPENSION [None]
  - MUSCULOSKELETAL PAIN [None]
  - PSORIASIS [None]
  - MENORRHAGIA [None]
  - OSTEOCHONDROSIS [None]
  - ROTATOR CUFF SYNDROME [None]
  - ARTHRALGIA [None]
  - PAIN IN EXTREMITY [None]
  - ARTHRITIS [None]
